FAERS Safety Report 12772405 (Version 1)
Quarter: 2016Q3

REPORT INFORMATION
  Report Type: Spontaneous
  Country: GB (occurrence: GB)
  Receive Date: 20160922
  Receipt Date: 20160922
  Transmission Date: 20161109
  Serious: Yes (Other)
  Sender: FDA-Public Use
  Company Number: GB-PFIZER INC-2016439785

PATIENT
  Age: 51 Year
  Sex: Male
  Weight: 72 kg

DRUGS (10)
  1. SALBUTAMOL [Concomitant]
     Active Substance: ALBUTEROL
     Dosage: 2 DF, AS NEEDED
     Route: 055
     Dates: start: 20151005
  2. FLUTICASONE [Concomitant]
     Active Substance: FLUTICASONE\FLUTICASONE PROPIONATE
     Dosage: 2 DF, 2X/DAY
     Route: 055
     Dates: start: 20151005, end: 20160817
  3. PROMETHAZINE HYDROCHLORIDE. [Concomitant]
     Active Substance: PROMETHAZINE HYDROCHLORIDE
     Dosage: 1 DF, 1X/DAY (AT NIGHT)
     Dates: start: 20160219
  4. BENZOYL PEROXIDE. [Concomitant]
     Active Substance: BENZOYL PEROXIDE
     Dosage: 1 DF, 1X/DAY (IN THE EVENING)
     Dates: start: 20151005
  5. FLUTICASONE PROPIONATE. [Concomitant]
     Active Substance: FLUTICASONE PROPIONATE
     Dosage: 2 DF, 1X/DAY (IN THE MORNING)
     Dates: start: 20151005
  6. PREGABALIN. [Suspect]
     Active Substance: PREGABALIN
     Dosage: UNK
     Dates: start: 20160517
  7. AGOMELATINE [Concomitant]
     Active Substance: AGOMELATINE
     Dosage: 2 DF, 1X/DAY (EACH MORNING)
     Dates: start: 20160211
  8. VORTIOXETINE [Concomitant]
     Active Substance: VORTIOXETINE
     Dosage: 1 DF, 1X/DAY
     Dates: start: 20160817
  9. LAMOTRIGINE. [Concomitant]
     Active Substance: LAMOTRIGINE
     Dosage: 1 DF, 1X/DAY (AT NIGHT)
     Dates: start: 20160420
  10. SIRDUPLA [Concomitant]
     Dosage: 2 DF, 2X/DAY
     Route: 055
     Dates: start: 20160817

REACTIONS (3)
  - Anorgasmia [Not Recovered/Not Resolved]
  - Erection increased [Not Recovered/Not Resolved]
  - Priapism [Unknown]

NARRATIVE: CASE EVENT DATE: 20160801
